FAERS Safety Report 4495862-6 (Version None)
Quarter: 2004Q4

REPORT INFORMATION
  Report Type: 
  Country: None (occurrence: None)
  Receive Date: 20041104
  Receipt Date: 20041025
  Transmission Date: 20050328
  Serious: Yes (Other)
  Sender: FDA-Public Use
  Company Number: S04-USA-06177-01

PATIENT
  Age: 36 Year
  Sex: Male

DRUGS (2)
  1. LEXAPRO [Suspect]
     Indication: DEPRESSION
     Dosage: 20 MG QD PO
     Route: 048
     Dates: start: 20040520, end: 20040622
  2. LEXAPRO [Suspect]
     Indication: DEPRESSION
     Dosage: 10 MG QD PO
     Route: 048
     Dates: start: 20040322, end: 20040519

REACTIONS (8)
  - AGITATION [None]
  - BIPOLAR DISORDER [None]
  - CYCLOTHYMIC DISORDER [None]
  - HYPOMANIA [None]
  - LOSS OF EMPLOYMENT [None]
  - MANIA [None]
  - REFUSAL OF TREATMENT BY PATIENT [None]
  - TREATMENT NONCOMPLIANCE [None]
